FAERS Safety Report 9348033 (Version 2)
Quarter: 2013Q3

REPORT INFORMATION
  Report Type: Spontaneous
  Country: US (occurrence: US)
  Receive Date: 20130614
  Receipt Date: 20130711
  Transmission Date: 20140515
  Serious: No
  Sender: FDA-Public Use
  Company Number: US-009507513-1306USA004506

PATIENT
  Age: 55 Year
  Sex: Female
  Weight: 66.21 kg

DRUGS (3)
  1. SAPHRIS [Suspect]
     Indication: BIPOLAR DISORDER
     Dosage: 20 MG, UNK
     Route: 060
     Dates: start: 20111007, end: 201305
  2. STRATTERA [Concomitant]
  3. TRAZODONE HYDROCHLORIDE [Concomitant]
     Dosage: 200 MG, UNK
     Route: 048

REACTIONS (5)
  - Facial spasm [Recovering/Resolving]
  - Medication error [Unknown]
  - Jaw disorder [Recovered/Resolved]
  - Nausea [Not Recovered/Not Resolved]
  - Grimacing [Recovered/Resolved]
